FAERS Safety Report 5271199-2 (Version None)
Quarter: 2007Q1

REPORT INFORMATION
  Report Type: 
  Country: None (occurrence: None)
  Receive Date: 20070321
  Receipt Date: 20070313
  Transmission Date: 20070707
  Serious: Yes (Hospitalization)
  Sender: FDA-Public Use
  Company Number: US-JNJFOC-20070303665

PATIENT
  Sex: Female
  Weight: 145.15 kg

DRUGS (13)
  1. DURAGESIC-100 [Suspect]
     Indication: BACK PAIN
     Route: 062
  2. ACIPHEX [Suspect]
     Indication: GASTROOESOPHAGEAL REFLUX DISEASE
     Route: 048
  3. BETASERON [Concomitant]
     Indication: MULTIPLE SCLEROSIS
     Dosage: 1CC
     Route: 058
  4. LASIX [Concomitant]
     Indication: HYPERTENSION
     Route: 048
  5. ESTRACE [Concomitant]
     Indication: HORMONE REPLACEMENT THERAPY
     Route: 048
  6. ARICEPT [Concomitant]
     Indication: DEMENTIA ALZHEIMER'S TYPE
     Route: 048
  7. HYDROMORPHONE HCL [Concomitant]
     Indication: BREAKTHROUGH PAIN
     Route: 048
  8. PHENOBARBITAL TAB [Concomitant]
     Indication: EPILEPSY
     Route: 048
  9. VERAPAMIL [Concomitant]
     Indication: HEART RATE IRREGULAR
     Route: 048
  10. PROZAC [Concomitant]
     Indication: DEPRESSION
     Route: 048
  11. ASPIRIN [Concomitant]
     Indication: ANTICOAGULANT THERAPY
     Route: 048
  12. LIPITOR [Concomitant]
     Indication: BLOOD CHOLESTEROL
     Route: 048
  13. BACLOFEN [Concomitant]
     Indication: MUSCLE SPASMS
     Route: 048

REACTIONS (7)
  - FALL [None]
  - HYPERTENSION [None]
  - HYPERTHYROIDISM [None]
  - LOWER LIMB FRACTURE [None]
  - PELVIC FRACTURE [None]
  - WEIGHT DECREASED [None]
  - WRONG TECHNIQUE IN DRUG USAGE PROCESS [None]
